FAERS Safety Report 21096754 (Version 3)
Quarter: 2023Q1

REPORT INFORMATION
  Report Type: Spontaneous
  Country: JP (occurrence: JP)
  Receive Date: 20220718
  Receipt Date: 20230124
  Transmission Date: 20230418
  Serious: Yes (Other)
  Sender: FDA-Public Use
  Company Number: JP-NEUROCRINE BIOSCIENCES INC.-2022NBI04598

PATIENT

DRUGS (6)
  1. VALBENAZINE [Suspect]
     Active Substance: VALBENAZINE
     Indication: Product used for unknown indication
     Dosage: 40 MILLIGRAM, QD
     Route: 048
     Dates: start: 20220609
  2. RISPERIDONE [Concomitant]
     Active Substance: RISPERIDONE
  3. PYRETHIA [Concomitant]
     Active Substance: PROMETHAZINE HYDROCHLORIDE
  4. RIVOTRIL [Concomitant]
     Active Substance: CLONAZEPAM
  5. BROTIZOLAM [Concomitant]
     Active Substance: BROTIZOLAM
  6. FLUNITRAZEPAM [Concomitant]
     Active Substance: FLUNITRAZEPAM

REACTIONS (4)
  - Depressive symptom [Recovered/Resolved]
  - Somnolence [Recovered/Resolved]
  - Malaise [Recovered/Resolved]
  - Anxiety [Recovered/Resolved]
